FAERS Safety Report 7213443-8 (Version None)
Quarter: 2011Q1

REPORT INFORMATION
  Report Type: 
  Country: None (occurrence: None)
  Receive Date: 20110106
  Receipt Date: 20110104
  Transmission Date: 20110831
  Serious: Yes (Other)
  Sender: FDA-Public Use
  Company Number: IT-JNJFOC-20110100662

PATIENT
  Age: 26 Year
  Sex: Male

DRUGS (6)
  1. FEVARIN [Suspect]
     Indication: ILL-DEFINED DISORDER
     Route: 048
  2. TOPAMAX [Suspect]
     Indication: ILL-DEFINED DISORDER
     Route: 048
  3. ABILIFY [Suspect]
     Indication: ILL-DEFINED DISORDER
     Route: 048
  4. DEPAKENE [Suspect]
     Indication: ILL-DEFINED DISORDER
     Route: 048
  5. LORAZEPAM [Suspect]
     Indication: ILL-DEFINED DISORDER
     Dosage: 10
     Route: 048
  6. FLUOXETINE [Suspect]
     Indication: ILL-DEFINED DISORDER
     Route: 048

REACTIONS (2)
  - SELF INJURIOUS BEHAVIOUR [None]
  - MULTIPLE DRUG OVERDOSE INTENTIONAL [None]
